FAERS Safety Report 21563560 (Version 1)
Quarter: 2022Q4

REPORT INFORMATION
  Report Type: Report from Study
  Country: US (occurrence: US)
  Receive Date: 20221108
  Receipt Date: 20221108
  Transmission Date: 20230113
  Serious: Yes (Hospitalization)
  Sender: FDA-Public Use
  Company Number: US-ABBVIE-4189436

PATIENT
  Sex: Female

DRUGS (1)
  1. CREON [Suspect]
     Active Substance: PANCRELIPASE AMYLASE\PANCRELIPASE LIPASE\PANCRELIPASE PROTEASE
     Indication: Product used for unknown indication
     Dosage: THREE CAPSULES OF CREON WITH BREAKFAST, LUNCH AND SUPPER AND TWO CAPSULES WITH EACH SNACK
     Route: 048

REACTIONS (3)
  - Abdominal pain upper [Unknown]
  - Asthenia [Unknown]
  - Abdominal discomfort [Unknown]
